FAERS Safety Report 9269310 (Version 1)
Quarter: 2013Q2

REPORT INFORMATION
  Report Type: Spontaneous
  Country: US (occurrence: US)
  Receive Date: 20130503
  Receipt Date: 20130503
  Transmission Date: 20140414
  Serious: No
  Sender: FDA-Public Use
  Company Number: US-PFIZER INC-2013138236

PATIENT
  Age: 27 Year
  Sex: Male
  Weight: 69 kg

DRUGS (2)
  1. CHANTIX [Suspect]
     Indication: SMOKING CESSATION THERAPY
     Dosage: 0.5 MG, 1X/DAY
     Route: 048
     Dates: start: 2012
  2. CHANTIX [Suspect]
     Dosage: UNK
     Route: 048
     Dates: end: 2012

REACTIONS (1)
  - Drug ineffective [Unknown]
